FAERS Safety Report 14754029 (Version 1)
Quarter: 2018Q2

REPORT INFORMATION
  Report Type: Spontaneous
  Country: DE (occurrence: DE)
  Receive Date: 20180412
  Receipt Date: 20180412
  Transmission Date: 20180711
  Serious: Yes (Other)
  Sender: FDA-Public Use
  Company Number: DE-TEVA-2018-DE-878791

PATIENT
  Age: 54 Year
  Sex: Female

DRUGS (1)
  1. AMOXICILLIN-RATIOPHARM 1000 MG FILMTABLETTEN [Suspect]
     Active Substance: AMOXICILLIN
     Indication: INFLUENZA
     Dosage: 3000 MILLIGRAM DAILY;
     Route: 048

REACTIONS (4)
  - Diarrhoea [Recovering/Resolving]
  - Eating disorder [Unknown]
  - Abdominal discomfort [Unknown]
  - Circulatory collapse [Recovered/Resolved]
